FAERS Safety Report 18915763 (Version 1)
Quarter: 2021Q1

REPORT INFORMATION
  Report Type: Spontaneous
  Country: IL (occurrence: IL)
  Receive Date: 20210219
  Receipt Date: 20210219
  Transmission Date: 20210420
  Serious: Yes (Other)
  Sender: FDA-Public Use
  Company Number: IL-ASTRAZENECA-2021A057423

PATIENT
  Sex: Female

DRUGS (1)
  1. TAGRISSO [Suspect]
     Active Substance: OSIMERTINIB
     Indication: METASTASES TO CENTRAL NERVOUS SYSTEM
     Route: 048

REACTIONS (4)
  - Hypoaesthesia [Unknown]
  - Dysphagia [Unknown]
  - Facial paralysis [Unknown]
  - Eye disorder [Unknown]
